FAERS Safety Report 4449321-7 (Version None)
Quarter: 2004Q3

REPORT INFORMATION
  Report Type: 
  Country: None (occurrence: None)
  Receive Date: 20040913
  Receipt Date: 20040902
  Transmission Date: 20050211
  Serious: Yes (Hospitalization)
  Sender: FDA-Public Use
  Company Number: 2004UW18606

PATIENT
  Sex: Female

DRUGS (2)
  1. ARIMIDEX [Suspect]
     Indication: CARCINOMA
  2. TAMOXIFEN ^BARR^ [Suspect]
     Indication: CARCINOMA

REACTIONS (2)
  - UTERINE DISORDER [None]
  - UTERINE HAEMORRHAGE [None]
